FAERS Safety Report 11361343 (Version 1)
Quarter: 2015Q3

REPORT INFORMATION
  Report Type: Spontaneous
  Country: FR (occurrence: FR)
  Receive Date: 20150810
  Receipt Date: 20150810
  Transmission Date: 20151125
  Serious: Yes (Hospitalization)
  Sender: FDA-Public Use
  Company Number: FR-SA-2015SA115696

PATIENT
  Age: 63 Year
  Sex: Male

DRUGS (12)
  1. BISOCE [Concomitant]
     Active Substance: BISOPROLOL
     Dosage: STRENGTH: 2.5MG
     Route: 048
  2. AMOXICILLIN. [Concomitant]
     Active Substance: AMOXICILLIN
     Route: 048
     Dates: start: 20150528, end: 20150605
  3. GEMZAR [Interacting]
     Active Substance: GEMCITABINE HYDROCHLORIDE
     Route: 042
     Dates: start: 201504, end: 20150528
  4. LERCAN [Concomitant]
     Active Substance: LERCANIDIPINE
     Route: 048
     Dates: start: 201503, end: 20150528
  5. LANSOPRAZOLE. [Concomitant]
     Active Substance: LANSOPRAZOLE
     Route: 048
  6. LEXOMIL [Concomitant]
     Active Substance: BROMAZEPAM
     Dosage: STRENGTH: 6MG
  7. PREVISCAN [Concomitant]
     Active Substance: FLUINDIONE
     Dosage: STRENGTH: 20MG
     Route: 048
  8. LASILIX [Suspect]
     Active Substance: FUROSEMIDE
     Indication: OEDEMA
     Route: 048
     Dates: start: 20150528, end: 20150604
  9. COTAREG [Interacting]
     Active Substance: HYDROCHLOROTHIAZIDE\VALSARTAN
     Route: 048
  10. GEMZAR [Interacting]
     Active Substance: GEMCITABINE HYDROCHLORIDE
     Route: 042
     Dates: start: 20150611
  11. JANUVIA [Concomitant]
     Active Substance: SITAGLIPTIN PHOSPHATE
     Dosage: STRENGTH: 100MG
     Route: 048
  12. CORDARONE [Concomitant]
     Active Substance: AMIODARONE HYDROCHLORIDE
     Dosage: STRENGTH: 200MG
     Route: 048

REACTIONS (2)
  - Drug interaction [Unknown]
  - Acute kidney injury [Recovered/Resolved]

NARRATIVE: CASE EVENT DATE: 20150603
